FAERS Safety Report 7339468-X (Version None)
Quarter: 2011Q1

REPORT INFORMATION
  Report Type: 
  Country: None (occurrence: None)
  Receive Date: 20110308
  Receipt Date: 20101230
  Transmission Date: 20110831
  Serious: No
  Sender: FDA-Public Use
  Company Number: US-AMGEN-USASP2010012458

PATIENT
  Age: 83 Year
  Sex: Female

DRUGS (13)
  1. ELAVIL [Concomitant]
     Dosage: 1 MG, UNK
  2. ALEVE [Concomitant]
  3. CENTRUM SILVER                     /01292501/ [Concomitant]
  4. CALTRATE                           /00108001/ [Concomitant]
     Dosage: 1 MG, UNK
  5. PROLIA [Suspect]
     Indication: OSTEOPOROSIS POSTMENOPAUSAL
     Dosage: 60 MG, Q6MO
     Dates: start: 20101228
  6. VITAMIN A [Concomitant]
     Dosage: 1 IU, UNK
  7. NEXIUM [Concomitant]
     Dosage: 1 MG, UNK
  8. B COMPLEX                          /00212701/ [Concomitant]
  9. HYDROCODONE BITARTRATE [Concomitant]
  10. CRESTOR [Concomitant]
     Dosage: 1 MG, UNK
  11. LEVOTHYROXINE SODIUM [Concomitant]
     Dosage: 75 MG, UNK
  12. TAMOXIFEN CITRATE [Concomitant]
     Dosage: 1 MG, UNK
  13. CLARINEX                           /01202601/ [Concomitant]
     Dosage: 1 MG, UNK

REACTIONS (1)
  - DIARRHOEA [None]
